FAERS Safety Report 5757307-5 (Version None)
Quarter: 2008Q2

REPORT INFORMATION
  Report Type: 
  Country: None (occurrence: None)
  Receive Date: 20080603
  Receipt Date: 20080522
  Transmission Date: 20081010
  Serious: Yes (Hospitalization)
  Sender: FDA-Public Use
  Company Number: JP-ROCHE-566726

PATIENT
  Sex: Male

DRUGS (4)
  1. PEGASYS [Suspect]
     Indication: HEPATITIS C
     Route: 058
     Dates: start: 20071114, end: 20071212
  2. PEGASYS [Suspect]
     Route: 058
     Dates: start: 20071219, end: 20080319
  3. RIBAVIRIN [Suspect]
     Indication: HEPATITIS C
     Dosage: DIVIDED INTO 2 DOSES
     Route: 048
     Dates: start: 20071114, end: 20080319
  4. URSO 250 [Concomitant]
     Dosage: ROUTE: ORAL FORMULATION NOT OTHERWISE SPECIFIED
     Route: 048

REACTIONS (2)
  - ASCITES [None]
  - PLATELET COUNT DECREASED [None]
